FAERS Safety Report 21321432 (Version 1)
Quarter: 2022Q3

REPORT INFORMATION
  Report Type: Report from Study
  Country: US (occurrence: US)
  Receive Date: 20220912
  Receipt Date: 20220912
  Transmission Date: 20221027
  Serious: Yes (Other)
  Sender: FDA-Public Use
  Company Number: US-NOVARTISPH-NVSC2022US202333

PATIENT
  Sex: Female

DRUGS (2)
  1. ENTRESTO [Suspect]
     Active Substance: SACUBITRIL\VALSARTAN
     Indication: Product used for unknown indication
     Dosage: 1 DOSAGE FORM, BID (24.26 MG)
     Route: 048
  2. CARVEDILOL [Suspect]
     Active Substance: CARVEDILOL
     Indication: Product used for unknown indication
     Dosage: UNK
     Route: 065

REACTIONS (10)
  - Cardiac failure [Unknown]
  - Decreased activity [Unknown]
  - Throat clearing [Unknown]
  - Adverse drug reaction [Unknown]
  - Ejection fraction decreased [Unknown]
  - Bundle branch block left [Unknown]
  - Stress [Unknown]
  - Fatigue [Unknown]
  - Hypotension [Unknown]
  - Inappropriate schedule of product administration [Unknown]
